FAERS Safety Report 21161923 (Version 1)
Quarter: 2022Q3

REPORT INFORMATION
  Report Type: Spontaneous
  Country: CA (occurrence: CA)
  Receive Date: 20220802
  Receipt Date: 20220802
  Transmission Date: 20221027
  Serious: Yes (Death, Other)
  Sender: FDA-Public Use
  Company Number: CA-BRISTOL-MYERS SQUIBB COMPANY-2022-083119

PATIENT
  Age: 54 Year
  Sex: Male

DRUGS (35)
  1. ATAZANAVIR SULFATE [Suspect]
     Active Substance: ATAZANAVIR SULFATE
     Indication: HIV infection
     Route: 048
  2. ATAZANAVIR SULFATE [Suspect]
     Active Substance: ATAZANAVIR SULFATE
     Indication: Bipolar disorder
     Route: 005
  3. ATAZANAVIR SULFATE [Suspect]
     Active Substance: ATAZANAVIR SULFATE
     Route: 065
  4. EFAVIRENZ [Suspect]
     Active Substance: EFAVIRENZ
     Indication: HIV infection
     Route: 065
  5. EFAVIRENZ [Suspect]
     Active Substance: EFAVIRENZ
     Route: 048
  6. EFAVIRENZ [Suspect]
     Active Substance: EFAVIRENZ
     Route: 048
  7. EFAVIRENZ [Suspect]
     Active Substance: EFAVIRENZ
     Route: 048
  8. LAMIVUDINE [Concomitant]
     Active Substance: LAMIVUDINE
     Indication: HIV infection
     Route: 065
  9. LAMIVUDINE [Concomitant]
     Active Substance: LAMIVUDINE
     Route: 005
  10. KALETRA [Concomitant]
     Active Substance: LOPINAVIR\RITONAVIR
     Indication: HIV infection
     Route: 048
  11. KALETRA [Concomitant]
     Active Substance: LOPINAVIR\RITONAVIR
     Route: 065
  12. BUPROPION HYDROCHLORIDE [Concomitant]
     Active Substance: BUPROPION HYDROCHLORIDE
     Indication: Bipolar disorder
     Route: 048
  13. BUPROPION HYDROCHLORIDE [Concomitant]
     Active Substance: BUPROPION HYDROCHLORIDE
     Indication: Bipolar disorder
     Route: 048
  14. BUPROPION HYDROCHLORIDE [Concomitant]
     Active Substance: BUPROPION HYDROCHLORIDE
     Route: 065
  15. CLONAZEPAM [Concomitant]
     Active Substance: CLONAZEPAM
     Indication: Bipolar disorder
     Route: 048
  16. CLONAZEPAM [Concomitant]
     Active Substance: CLONAZEPAM
     Indication: HIV infection
     Route: 065
  17. RALTEGRAVIR POTASSIUM [Concomitant]
     Active Substance: RALTEGRAVIR POTASSIUM
     Indication: HIV infection
     Route: 048
  18. RALTEGRAVIR POTASSIUM [Concomitant]
     Active Substance: RALTEGRAVIR POTASSIUM
     Route: 048
  19. RALTEGRAVIR POTASSIUM [Concomitant]
     Active Substance: RALTEGRAVIR POTASSIUM
     Route: 048
  20. RALTEGRAVIR POTASSIUM [Concomitant]
     Active Substance: RALTEGRAVIR POTASSIUM
     Route: 048
  21. SERTRALINE [Concomitant]
     Active Substance: SERTRALINE HYDROCHLORIDE
     Indication: HIV infection
     Route: 048
  22. SERTRALINE [Concomitant]
     Active Substance: SERTRALINE HYDROCHLORIDE
     Indication: Bipolar disorder
     Route: 065
  23. SERTRALINE [Concomitant]
     Active Substance: SERTRALINE HYDROCHLORIDE
     Route: 065
  24. SERTRALINE HYDROCHLORIDE [Concomitant]
     Active Substance: SERTRALINE HYDROCHLORIDE
     Indication: Bipolar disorder
     Route: 065
  25. SERTRALINE HYDROCHLORIDE [Concomitant]
     Active Substance: SERTRALINE HYDROCHLORIDE
     Route: 048
  26. SUSTIVA [Concomitant]
     Active Substance: EFAVIRENZ
     Indication: Product used for unknown indication
     Route: 065
  27. VALPROIC ACID [Concomitant]
     Active Substance: VALPROIC ACID
     Indication: Bipolar disorder
     Route: 048
  28. VALPROIC ACID [Concomitant]
     Active Substance: VALPROIC ACID
     Route: 065
  29. ZOPICLONE [Concomitant]
     Active Substance: ZOPICLONE
     Indication: Bipolar disorder
     Route: 048
  30. QUETIAPINE [Concomitant]
     Active Substance: QUETIAPINE
     Indication: HIV infection
     Route: 065
  31. QUETIAPINE [Concomitant]
     Active Substance: QUETIAPINE
     Indication: Bipolar disorder
     Route: 065
  32. QUETIAPINE FUMARATE [Concomitant]
     Active Substance: QUETIAPINE FUMARATE
     Indication: Bipolar disorder
     Route: 065
  33. QUETIAPINE FUMARATE [Concomitant]
     Active Substance: QUETIAPINE FUMARATE
     Indication: HIV infection
     Route: 048
  34. ENFUVIRTIDE (T-20) [Concomitant]
     Indication: HIV infection
     Route: 048
  35. ENFUVIRTIDE (T-20) [Concomitant]
     Route: 065

REACTIONS (1)
  - Death [Fatal]
